FAERS Safety Report 6511390-8 (Version None)
Quarter: 2009Q4

REPORT INFORMATION
  Report Type: 
  Country: None (occurrence: None)
  Receive Date: 20091222
  Receipt Date: 20090309
  Transmission Date: 20100525
  Serious: No
  Sender: FDA-Public Use
  Company Number: US-ASTRAZENECA-2009UW06248

PATIENT
  Age: 735 Month
  Sex: Male
  Weight: 129.3 kg

DRUGS (8)
  1. CRESTOR [Suspect]
     Indication: BLOOD CHOLESTEROL INCREASED
     Route: 048
     Dates: start: 20060101
  2. LYRICA [Concomitant]
  3. CYMBALTA [Concomitant]
  4. HUMALOG [Concomitant]
  5. BUPROPION HCL [Concomitant]
  6. COLCHICINE [Concomitant]
  7. TRAMADOL HCL [Concomitant]
  8. DIVALPROEX SODIUM [Concomitant]

REACTIONS (1)
  - PNEUMONIA [None]
